FAERS Safety Report 23843106 (Version 1)
Quarter: 2024Q2

REPORT INFORMATION
  Report Type: Spontaneous
  Country: US (occurrence: None)
  Receive Date: 20240509
  Receipt Date: 20240509
  Transmission Date: 20240715
  Serious: Yes (Hospitalization)
  Sender: FDA-Public Use
  Company Number: None

PATIENT
  Age: 23 Year
  Sex: Female
  Weight: 67.05 kg

DRUGS (3)
  1. ZAVZPRET [Suspect]
     Active Substance: ZAVEGEPANT HYDROCHLORIDE
     Indication: Migraine
     Dosage: OTHER QUANTITY : 6 SPRAY(S);?FREQUENCY : AS NEEDED;?
     Route: 055
     Dates: start: 20240509, end: 20240509
  2. DULOXETINE [Concomitant]
     Active Substance: DULOXETINE
  3. VITAMIN D NOS [Concomitant]
     Active Substance: CHOLECALCIFEROL\ERGOCALCIFEROL

REACTIONS (9)
  - Electric shock sensation [None]
  - Hypoaesthesia [None]
  - Hypoaesthesia oral [None]
  - Sensorimotor disorder [None]
  - Speech disorder [None]
  - Drooling [None]
  - Dysstasia [None]
  - Drug interaction [None]
  - Product use issue [None]

NARRATIVE: CASE EVENT DATE: 20240509
